FAERS Safety Report 22379639 (Version 2)
Quarter: 2024Q2

REPORT INFORMATION
  Report Type: Spontaneous
  Country: US (occurrence: US)
  Receive Date: 20230529
  Receipt Date: 20240426
  Transmission Date: 20240716
  Serious: No
  Sender: FDA-Public Use
  Company Number: US-ABBVIE-5180663

PATIENT
  Sex: Female

DRUGS (1)
  1. LUPRON [Suspect]
     Active Substance: LEUPROLIDE ACETATE
     Indication: Product used for unknown indication
     Route: 065
     Dates: end: 2003

REACTIONS (5)
  - Tooth loss [Unknown]
  - Alopecia [Unknown]
  - Fatigue [Unknown]
  - Eye disorder [Unknown]
  - Adverse drug reaction [Unknown]
